FAERS Safety Report 4980377-9 (Version None)
Quarter: 2006Q2

REPORT INFORMATION
  Report Type: 
  Country: None (occurrence: None)
  Receive Date: 20060421
  Receipt Date: 20060421
  Transmission Date: 20061013
  Serious: Yes (Life-Threatening)
  Sender: FDA-Public Use
  Company Number: None

PATIENT
  Age: 63 Year
  Sex: Female
  Weight: 90.7194 kg

DRUGS (1)
  1. NYSTATIN [Suspect]
     Indication: CANDIDIASIS
     Dosage: DIRECTED TO OCCUDE THIS  3 TIMES A DAY   OCCLUSIVE DRESSING TECHNIQUE
     Route: 046
     Dates: start: 20060409, end: 20060410

REACTIONS (4)
  - EYE IRRITATION [None]
  - HEADACHE [None]
  - INSOMNIA [None]
  - POOR QUALITY DRUG ADMINISTERED [None]
